FAERS Safety Report 4969937-9 (Version None)
Quarter: 2006Q1

REPORT INFORMATION
  Report Type: 
  Country: None (occurrence: None)
  Receive Date: 20060202
  Receipt Date: 19990315
  Transmission Date: 20060701
  Serious: Yes (Hospitalization, Other)
  Sender: FDA-Public Use
  Company Number: PHEH1999US21162

PATIENT
  Age: 61 Year
  Sex: Male

DRUGS (3)
  1. RITALIN [Suspect]
     Indication: PSYCHOMOTOR HYPERACTIVITY
     Dates: start: 19970703
  2. VASOTEC 9ENALAPRIL MALEATE) [Concomitant]
  3. INSULIN [Concomitant]

REACTIONS (3)
  - BLINDNESS TRANSIENT [None]
  - CEREBROVASCULAR ACCIDENT [None]
  - DIFFICULTY IN WALKING [None]
